FAERS Safety Report 8115231-7 (Version None)
Quarter: 2012Q1

REPORT INFORMATION
  Report Type: 
  Country: None (occurrence: None)
  Receive Date: 20120206
  Receipt Date: 20120127
  Transmission Date: 20120608
  Serious: Yes (Other)
  Sender: FDA-Public Use
  Company Number: US-ASTELLAS-2011US008341

PATIENT
  Sex: Male
  Weight: 68 kg

DRUGS (3)
  1. PROGRAF [Suspect]
     Indication: LIVER TRANSPLANT
     Dosage: 1 MG, BID
     Route: 048
     Dates: start: 19961201
  2. LISINOPRIL [Concomitant]
     Indication: DYSPEPSIA
     Dosage: UNK
     Route: 048
     Dates: start: 20040101
  3. LISINOPRIL [Concomitant]
     Indication: BLOOD PRESSURE

REACTIONS (2)
  - SURGERY [None]
  - SPINAL COLUMN STENOSIS [None]
